FAERS Safety Report 7596188-4 (Version None)
Quarter: 2011Q3

REPORT INFORMATION
  Report Type: 
  Country: None (occurrence: None)
  Receive Date: 20110707
  Receipt Date: 20110705
  Transmission Date: 20111222
  Serious: Yes (Hospitalization, Other)
  Sender: FDA-Public Use
  Company Number: GR-PFIZER INC-2011149589

PATIENT
  Age: 66 Year
  Sex: Male

DRUGS (4)
  1. GABAPENTIN [Suspect]
     Dosage: 1800 MG, UNK
  2. FLUOXETINE [Suspect]
     Dosage: 80 MG, UNK
  3. VALPROATE SODIUM [Suspect]
     Dosage: 500 MG, UNK
  4. QUETIAPINE [Suspect]
     Dosage: 100 MG, UNK

REACTIONS (8)
  - DRUG INEFFECTIVE [None]
  - SOMNOLENCE [None]
  - INSOMNIA [None]
  - SEPSIS [None]
  - ONYCHOPHAGIA [None]
  - HYPOAESTHESIA [None]
  - IMPULSE-CONTROL DISORDER [None]
  - CEREBRAL ATROPHY [None]
